FAERS Safety Report 6312609-9 (Version None)
Quarter: 2009Q3

REPORT INFORMATION
  Report Type: 
  Country: None (occurrence: None)
  Receive Date: 20090813
  Receipt Date: 20090803
  Transmission Date: 20100115
  Serious: Yes (Hospitalization)
  Sender: FDA-Public Use
  Company Number: 2008AL012003

PATIENT
  Age: 63 Year
  Sex: Male
  Weight: 80.7403 kg

DRUGS (21)
  1. DIGOXIN [Suspect]
     Indication: CARDIAC DISORDER
     Dosage: 0.125MG, DAILY, PO
     Route: 048
     Dates: start: 20060101, end: 20080501
  2. FOLIC ACID [Concomitant]
  3. LACTULOSE [Concomitant]
  4. METOPROLOL [Concomitant]
  5. MICONAZOLE [Concomitant]
  6. ASPIRIN [Concomitant]
  7. CAPTOPRIL [Concomitant]
  8. NIFEDIPINE [Concomitant]
  9. ENALAPRIL MALEATE [Concomitant]
  10. ACETIC ACID [Concomitant]
  11. FUROSEMIDE [Concomitant]
  12. HYDROCHLOROTHIAZIDE [Concomitant]
  13. ZOCOR [Concomitant]
  14. WARFARIN [Concomitant]
  15. SIMVASTATIN [Concomitant]
  16. OMEPRAZOLE [Concomitant]
  17. METFORMIN HCL [Concomitant]
  18. DILTIAZEM [Concomitant]
  19. GATIFLOXACIN [Concomitant]
  20. ATENOLOL [Concomitant]
  21. CLONIDINE [Concomitant]

REACTIONS (29)
  - ABDOMINAL DISTENSION [None]
  - ABDOMINAL PAIN [None]
  - ASCITES [None]
  - ATRIAL FLUTTER [None]
  - BLOOD PRESSURE INCREASED [None]
  - CARDIAC FAILURE CONGESTIVE [None]
  - CHEST PAIN [None]
  - CHRONIC OBSTRUCTIVE PULMONARY DISEASE [None]
  - CONSTIPATION [None]
  - CORONARY ARTERY DISEASE [None]
  - COUGH [None]
  - DELIRIUM [None]
  - DIZZINESS [None]
  - DYSPNOEA [None]
  - ECONOMIC PROBLEM [None]
  - EFFUSION [None]
  - FAECES DISCOLOURED [None]
  - FIBROSIS [None]
  - GRAVITATIONAL OEDEMA [None]
  - HEARING IMPAIRED [None]
  - HYPERTENSION [None]
  - HYPONATRAEMIA [None]
  - MULTIPLE INJURIES [None]
  - OEDEMA PERIPHERAL [None]
  - ORTHOPNOEA [None]
  - PALPITATIONS [None]
  - PULMONARY MASS [None]
  - SICK SINUS SYNDROME [None]
  - TACHYCARDIA [None]
